FAERS Safety Report 24727982 (Version 2)
Quarter: 2024Q4

REPORT INFORMATION
  Report Type: Spontaneous
  Country: JP (occurrence: JP)
  Receive Date: 20241212
  Receipt Date: 20241218
  Transmission Date: 20250114
  Serious: Yes (Hospitalization)
  Sender: PFIZER
  Company Number: JP-PFIZER INC-202400320267

PATIENT
  Age: 69 Year
  Sex: Female

DRUGS (2)
  1. METHOTREXATE SODIUM [Suspect]
     Active Substance: METHOTREXATE SODIUM
     Indication: Rheumatoid arthritis
     Dosage: 6 MG, WEEKLY
  2. ETANERCEPT [Concomitant]
     Active Substance: ETANERCEPT
     Indication: Rheumatoid arthritis
     Dosage: 50 MG, WEEKLY

REACTIONS (4)
  - Lymphoproliferative disorder [Recovered/Resolved]
  - Nasopharyngitis [Recovered/Resolved]
  - Dyspnoea [Recovered/Resolved]
  - Pericardial effusion [Recovered/Resolved]
